FAERS Safety Report 4361350-0 (Version None)
Quarter: 2004Q2

REPORT INFORMATION
  Report Type: 
  Country: None (occurrence: None)
  Receive Date: 20040521
  Receipt Date: 20040514
  Transmission Date: 20050107
  Serious: Yes (Hospitalization)
  Sender: FDA-Public Use
  Company Number: PHEH2004US05387

PATIENT
  Sex: Male

DRUGS (9)
  1. NEORAL [Suspect]
     Indication: ANAEMIA HAEMOLYTIC AUTOIMMUNE
     Route: 048
     Dates: start: 20040303, end: 20040311
  2. PREDNISONE [Concomitant]
  3. ATIVAN [Concomitant]
  4. FOLIC ACID [Concomitant]
  5. VASOTEC [Concomitant]
  6. NEXIUM [Concomitant]
  7. ALLEGRA [Concomitant]
  8. PAXIL [Concomitant]
  9. ASPIRIN [Concomitant]

REACTIONS (8)
  - CONVULSION [None]
  - HYPERTENSION [None]
  - MONOPARESIS [None]
  - NUCLEAR MAGNETIC RESONANCE IMAGING BRAIN ABNORMAL [None]
  - STARING [None]
  - TONGUE DISORDER [None]
  - TRANSIENT ISCHAEMIC ATTACK [None]
  - ULTRASOUND SCAN ABNORMAL [None]
